APPROVED DRUG PRODUCT: LANTRISUL
Active Ingredient: TRISULFAPYRIMIDINES (SULFADIAZINE;SULFAMERAZINE;SULFAMETHAZINE)
Strength: 167MG/5ML;167MG/5ML;167MG/5ML
Dosage Form/Route: SUSPENSION;ORAL
Application: A080123 | Product #002
Applicant: LANNETT CO INC
Approved: Approved Prior to Jan 1, 1982 | RLD: No | RS: No | Type: DISCN